FAERS Safety Report 7415707-1 (Version None)
Quarter: 2011Q2

REPORT INFORMATION
  Report Type: 
  Country: None (occurrence: None)
  Receive Date: 20110414
  Receipt Date: 20110411
  Transmission Date: 20111010
  Serious: Yes (Death)
  Sender: FDA-Public Use
  Company Number: BR-BRISTOL-MYERS SQUIBB COMPANY-15667959

PATIENT
  Sex: Male

DRUGS (1)
  1. LISODREN TABS 500 MG [Suspect]
     Dosage: USED 1 BOTTLE OF LISODREN

REACTIONS (1)
  - DEATH [None]
